FAERS Safety Report 6413016-0 (Version None)
Quarter: 2009Q4

REPORT INFORMATION
  Report Type: 
  Country: None (occurrence: None)
  Receive Date: 20091023
  Receipt Date: 20091023
  Transmission Date: 20100525
  Serious: Yes (Life-Threatening)
  Sender: FDA-Public Use
  Company Number: None

PATIENT
  Age: 1 Year
  Sex: Female
  Weight: 11.3399 kg

DRUGS (1)
  1. PEDIAZOLE [Suspect]
     Indication: INFECTION
     Dosage: ORAL (AS PRESCRIBED)
     Route: 048

REACTIONS (2)
  - PYREXIA [None]
  - RASH [None]
